FAERS Safety Report 18072613 (Version 1)
Quarter: 2020Q3

REPORT INFORMATION
  Report Type: Spontaneous
  Country: US (occurrence: US)
  Receive Date: 20200727
  Receipt Date: 20200727
  Transmission Date: 20201103
  Serious: No
  Sender: FDA-Public Use
  Company Number: US-ACCORD-166723

PATIENT
  Age: 75 Year
  Sex: Female

DRUGS (1)
  1. LETROZOLE. [Suspect]
     Active Substance: LETROZOLE
     Indication: BREAST CANCER
     Dosage: ONCE A DAY
     Dates: start: 201906, end: 20191115

REACTIONS (4)
  - Vertigo [Recovered/Resolved]
  - Alopecia [Recovered/Resolved]
  - Weight increased [Unknown]
  - Gastrointestinal disorder [Recovered/Resolved]
